FAERS Safety Report 17509116 (Version 1)
Quarter: 2020Q1

REPORT INFORMATION
  Report Type: Spontaneous
  Country: NL (occurrence: NL)
  Receive Date: 20200306
  Receipt Date: 20200306
  Transmission Date: 20200409
  Serious: Yes (Death)
  Sender: FDA-Public Use
  Company Number: NL-009507513-2003NLD001769

PATIENT
  Age: 77 Year
  Sex: Male
  Weight: 82 kg

DRUGS (9)
  1. TRANYLCYPROMINE [Suspect]
     Active Substance: TRANYLCYPROMINE
     Indication: DEPRESSION
     Dosage: TABLET, 20 MG (MILLIGRAM), 3 TIMES A DAY, 2 TIMES DAILY 1 AND 1 TIMES DAILY 0.5
     Dates: start: 20191210, end: 20191217
  2. MONO-CEDOCARD [Concomitant]
     Active Substance: ISOSORBIDE MONONITRATE
     Dosage: CONTROLLED-RELEASE CAPSULE, 50 MG (MILLIGRAMS)
  3. CLOPIDOGREL [Concomitant]
     Active Substance: CLOPIDOGREL BISULFATE
     Dosage: TABLET, 75 MG (MILLIGRAM)
  4. DIAZEPAM. [Concomitant]
     Active Substance: DIAZEPAM
     Dosage: TABLET, 5 MG (MILLIGRAM)
  5. BROMAZEPAM [Concomitant]
     Active Substance: BROMAZEPAM
     Dosage: TABLET, 3 MG (MILLIGRAM)
  6. MIRTAZAPINE. [Suspect]
     Active Substance: MIRTAZAPINE
     Dosage: TABLET, 15 MG (MILLIGRAM)
     Dates: start: 20190710
  7. FERROUS FUMARATE [Concomitant]
     Active Substance: FERROUS FUMARATE
     Dosage: TABLET, 200 MG (MILLIGRAM)
  8. SIMVASTATIN. [Concomitant]
     Active Substance: SIMVASTATIN
     Dosage: FILM-COATED TABLET, 40 MG (MILLIGRAM)
  9. CHOLECALCIFEROL [Concomitant]
     Active Substance: CHOLECALCIFEROL
     Dosage: CAPSULE, 5600 UNITS

REACTIONS (4)
  - Potentiating drug interaction [Fatal]
  - Contraindicated product administered [Fatal]
  - Drug dose titration not performed [Fatal]
  - Serotonin syndrome [Fatal]

NARRATIVE: CASE EVENT DATE: 20191210
